FAERS Safety Report 7711543-7 (Version None)
Quarter: 2011Q3

REPORT INFORMATION
  Report Type: 
  Country: None (occurrence: None)
  Receive Date: 20110822
  Receipt Date: 20110809
  Transmission Date: 20111222
  Serious: Yes (Other)
  Sender: FDA-Public Use
  Company Number: 2011VX002152

PATIENT
  Age: 27 Year
  Sex: Male

DRUGS (6)
  1. LATANOPROST [Suspect]
     Indication: INTRAOCULAR PRESSURE TEST
     Dosage: OPH
     Route: 047
  2. PILOCARPINE [Suspect]
     Indication: INTRAOCULAR PRESSURE INCREASED
     Dosage: OPH
     Route: 047
  3. ATROPINE [Suspect]
     Indication: ANTERIOR CHAMBER DISORDER
  4. ACETAZOLAMIDE [Suspect]
     Indication: ANTERIOR CHAMBER DISORDER
  5. DORZOLAMIDE HYDROCHLORIDE [Suspect]
     Indication: INTRAOCULAR PRESSURE INCREASED
     Dosage: OPH
     Route: 047
  6. TIMOLOL MALEATE [Suspect]
     Indication: INTRAOCULAR PRESSURE INCREASED
     Dosage: OPH
     Route: 047

REACTIONS (8)
  - INTRAOCULAR PRESSURE INCREASED [None]
  - IRIDOCYCLITIS [None]
  - VISUAL ACUITY TESTS ABNORMAL [None]
  - VISUAL FIELD DEFECT [None]
  - ANTERIOR CHAMBER DISORDER [None]
  - DRUG INEFFECTIVE [None]
  - HYPHAEMA [None]
  - CONDITION AGGRAVATED [None]
